FAERS Safety Report 15012792 (Version 2)
Quarter: 2018Q3

REPORT INFORMATION
  Report Type: Report from Study
  Country: US (occurrence: US)
  Receive Date: 20180614
  Receipt Date: 20180718
  Transmission Date: 20181010
  Serious: Yes (Death, Hospitalization)
  Sender: FDA-Public Use
  Company Number: US-JNJFOC-20180614740

PATIENT
  Sex: Male

DRUGS (15)
  1. CYANOCOBALAMIN. [Concomitant]
     Active Substance: CYANOCOBALAMIN
  2. VITAMIN D [Concomitant]
     Active Substance: CHOLECALCIFEROL
  3. LISINOPRIL. [Concomitant]
     Active Substance: LISINOPRIL
  4. ASPIRIN. [Concomitant]
     Active Substance: ASPIRIN
  5. ACETAMIN [Concomitant]
     Active Substance: ACETAMINOPHEN
  6. GLUCOSAMINE [Concomitant]
     Active Substance: GLUCOSAMINE
  7. MAGNESIUM [Concomitant]
     Active Substance: MAGNESIUM
  8. MULTIVITAMINS [Concomitant]
     Active Substance: VITAMINS
  9. LASIX [Concomitant]
     Active Substance: FUROSEMIDE
  10. IMBRUVICA [Suspect]
     Active Substance: IBRUTINIB
     Indication: MANTLE CELL LYMPHOMA
     Route: 048
     Dates: start: 20180222, end: 20180416
  11. IMBRUVICA [Suspect]
     Active Substance: IBRUTINIB
     Indication: MANTLE CELL LYMPHOMA
     Route: 048
     Dates: start: 20170417, end: 20180516
  12. PROCHLORPERAZINE. [Concomitant]
     Active Substance: PROCHLORPERAZINE
  13. LEVOTHYROXINE. [Concomitant]
     Active Substance: LEVOTHYROXINE
  14. IMBRUVICA [Suspect]
     Active Substance: IBRUTINIB
     Indication: MANTLE CELL LYMPHOMA
     Route: 048
     Dates: start: 20180517
  15. SODIUM CHLORIDE. [Concomitant]
     Active Substance: SODIUM CHLORIDE

REACTIONS (7)
  - Escherichia infection [Unknown]
  - Death [Fatal]
  - White blood cell count decreased [Unknown]
  - Sepsis [Unknown]
  - Staphylococcal infection [Unknown]
  - Splenomegaly [Unknown]
  - Pleural effusion [Unknown]
